FAERS Safety Report 9280994 (Version 1)
Quarter: 2013Q2

REPORT INFORMATION
  Report Type: Spontaneous
  Country: US (occurrence: US)
  Receive Date: 20130509
  Receipt Date: 20130509
  Transmission Date: 20140414
  Serious: Yes (Hospitalization)
  Sender: FDA-Public Use
  Company Number: US-GLAXOSMITHKLINE-A0781740A

PATIENT
  Age: 38 Year
  Sex: Male

DRUGS (1)
  1. AVANDAMET [Suspect]
     Indication: TYPE 2 DIABETES MELLITUS
     Route: 048
     Dates: start: 2000, end: 2007

REACTIONS (3)
  - Atrial fibrillation [Not Recovered/Not Resolved]
  - Cardiomyopathy [Unknown]
  - Cardiac failure congestive [Unknown]
